FAERS Safety Report 5086637-8 (Version None)
Quarter: 2006Q3

REPORT INFORMATION
  Report Type: 
  Country: None (occurrence: None)
  Receive Date: 20060703
  Receipt Date: 20050919
  Transmission Date: 20061208
  Serious: No
  Sender: FDA-Public Use
  Company Number: 2005S1009258

PATIENT
  Age: 54 Year
  Sex: Male
  Weight: 90 kg

DRUGS (7)
  1. CLOZAPINE [Suspect]
     Indication: SCHIZOPHRENIA, PARANOID TYPE
     Dosage: 300 MG;HS;PO
     Route: 048
     Dates: start: 20050601
  2. CLONIDINE [Concomitant]
  3. HYDROCHLOROTHIAZDE TAB [Concomitant]
  4. NICOTINE RESIN [Concomitant]
  5. RANITIDINE HYDROCHLORIDE [Concomitant]
  6. RISPERIDONE [Concomitant]
  7. SIMVASTATIN [Concomitant]

REACTIONS (1)
  - GRANULOCYTOPENIA [None]
